FAERS Safety Report 8621852-5 (Version None)
Quarter: 2012Q3

REPORT INFORMATION
  Report Type: 
  Country: None (occurrence: None)
  Receive Date: 20120822
  Receipt Date: 20120822
  Transmission Date: 20120928
  Serious: Yes (Other)
  Sender: FDA-Public Use
  Company Number: None

PATIENT
  Age: 65 Year
  Sex: Female
  Weight: 99.3377 kg

DRUGS (1)
  1. LEVOTHYROXINE SODIUM [Suspect]
     Indication: HYPOTHYROIDISM
     Dosage: 175MCG 1 A DAY PO
     Route: 048
     Dates: start: 20120707, end: 20120820

REACTIONS (5)
  - PRODUCT SUBSTITUTION ISSUE [None]
  - FATIGUE [None]
  - WEIGHT INCREASED [None]
  - MEMORY IMPAIRMENT [None]
  - DYSPHONIA [None]
